FAERS Safety Report 15207802 (Version 1)
Quarter: 2018Q3

REPORT INFORMATION
  Report Type: Spontaneous
  Country: US (occurrence: US)
  Receive Date: 20180727
  Receipt Date: 20180727
  Transmission Date: 20181010
  Serious: Yes (Other)
  Sender: FDA-Public Use
  Company Number: US-ALLERGAN-1809905US

PATIENT
  Sex: Male

DRUGS (1)
  1. ANDRODERM [Suspect]
     Active Substance: TESTOSTERONE
     Indication: BLOOD TESTOSTERONE DECREASED
     Dosage: UNK UNK, UNKNOWN
     Route: 065
     Dates: start: 2005, end: 2009

REACTIONS (3)
  - Myocardial infarction [Unknown]
  - Pulmonary embolism [Unknown]
  - Deep vein thrombosis [Unknown]
